FAERS Safety Report 13909232 (Version 3)
Quarter: 2018Q2

REPORT INFORMATION
  Report Type: Spontaneous
  Country: DE (occurrence: DE)
  Receive Date: 20170828
  Receipt Date: 20180504
  Transmission Date: 20180711
  Serious: Yes (Death, Life-Threatening, Hospitalization, Other)
  Sender: FDA-Public Use
  Company Number: DE-ACCORD-057646

PATIENT
  Age: 22 Year
  Sex: Female

DRUGS (2)
  1. LORAZEPAM. [Concomitant]
     Active Substance: LORAZEPAM
     Indication: OBSESSIVE THOUGHTS
     Route: 065
  2. QUETIAPINE. [Suspect]
     Active Substance: QUETIAPINE
     Indication: PSYCHOTIC DISORDER
     Route: 065

REACTIONS (13)
  - Pneumonia fungal [Fatal]
  - Fall [Unknown]
  - Agranulocytosis [Fatal]
  - Metabolic acidosis [Fatal]
  - Circulatory collapse [Fatal]
  - Hypotonia [Fatal]
  - Sepsis [Fatal]
  - Pharyngitis [Fatal]
  - Tonsillitis [Fatal]
  - Pharyngeal oedema [Fatal]
  - Multiple organ dysfunction syndrome [Fatal]
  - Hypoxia [Fatal]
  - Cardiopulmonary failure [Fatal]
